FAERS Safety Report 10190127 (Version 1)
Quarter: 2014Q2

REPORT INFORMATION
  Report Type: Spontaneous
  Country: US (occurrence: US)
  Receive Date: 20140522
  Receipt Date: 20140522
  Transmission Date: 20141212
  Serious: Yes (Life-Threatening, Congenital Anomaly, Other)
  Sender: FDA-Public Use
  Company Number: US-ELI_LILLY_AND_COMPANY-US201405004786

PATIENT
  Sex: 0

DRUGS (2)
  1. CYMBALTA [Suspect]
     Indication: ANXIETY
     Dosage: UNK
     Route: 064
  2. CYMBALTA [Suspect]
     Indication: AFFECTIVE DISORDER

REACTIONS (13)
  - Craniofacial deformity [Recovered/Resolved]
  - Premature baby [Unknown]
  - Bronchopulmonary dysplasia [Recovered/Resolved]
  - Patent ductus arteriosus [Recovered/Resolved]
  - Atrial septal defect [Recovered/Resolved]
  - Nasal disorder [Unknown]
  - Cleft uvula [Unknown]
  - Congenital foot malformation [Unknown]
  - Cleft palate [Recovered/Resolved]
  - Ankyloglossia congenital [Unknown]
  - Developmental delay [Recovered/Resolved]
  - Aphasia [Unknown]
  - Foetal exposure during pregnancy [Unknown]
